FAERS Safety Report 4349296-5 (Version None)
Quarter: 2004Q2

REPORT INFORMATION
  Report Type: 
  Country: None (occurrence: None)
  Receive Date: 20040428
  Receipt Date: 20020626
  Transmission Date: 20050107
  Serious: Yes (Hospitalization, Other)
  Sender: FDA-Public Use
  Company Number: US-BRISTOL-MYERS SQUIBB COMPANY-11926748

PATIENT
  Age: 18 Year
  Sex: Female

DRUGS (3)
  1. BMS224818 [Concomitant]
     Dosage: -SEVENTH COURSE OF TREATMENT.  RE-ALLOCATION DATE: 25-MAY-2002
     Route: 042
     Dates: start: 20020301
  2. CELLCEPT [Suspect]
     Dates: start: 20020301
  3. PREDNISONE [Suspect]
     Dates: start: 20020303

REACTIONS (2)
  - KIDNEY TRANSPLANT REJECTION [None]
  - RENAL ARTERY STENOSIS [None]
